FAERS Safety Report 18111320 (Version 1)
Quarter: 2020Q3

REPORT INFORMATION
  Report Type: Spontaneous
  Country: US (occurrence: US)
  Receive Date: 20200804
  Receipt Date: 20200804
  Transmission Date: 20201103
  Serious: Yes (Hospitalization, Other)
  Sender: FDA-Public Use
  Company Number: US-PURDUE-USA-2020-0160390

PATIENT
  Age: 36 Year
  Sex: Male

DRUGS (15)
  1. OXYCODONE HCL TABLETS (91?490) [Suspect]
     Active Substance: OXYCODONE HYDROCHLORIDE
     Indication: NECK PAIN
  2. VIAGRA [Concomitant]
     Active Substance: SILDENAFIL CITRATE
     Indication: ERECTILE DYSFUNCTION
     Dosage: 100 MG, PRN
     Route: 048
     Dates: start: 20160407
  3. OXYCODONE/ ACETAMINOPHEN TABLETS [Suspect]
     Active Substance: ACETAMINOPHEN\OXYCODONE HYDROCHLORIDE
     Indication: NECK PAIN
  4. DRYSOL [Concomitant]
     Active Substance: ALUMINUM CHLORIDE
     Indication: PRODUCT USED FOR UNKNOWN INDICATION
     Dosage: UNK, PRN
     Route: 048
  5. TOPAMAX [Concomitant]
     Active Substance: TOPIRAMATE
     Indication: INCREASED APPETITE
     Dosage: UNK, UNK
     Route: 048
  6. LITHOBID [Concomitant]
     Active Substance: LITHIUM CARBONATE
     Indication: BIPOLAR DISORDER
     Dosage: 4 TABLET, DAILY
     Route: 048
     Dates: start: 20140711
  7. LOTRISONE [Concomitant]
     Active Substance: BETAMETHASONE DIPROPIONATE\CLOTRIMAZOLE
     Indication: BODY TINEA
     Dosage: UNK, BID
     Route: 065
     Dates: start: 20150618
  8. OXYCONTIN [Suspect]
     Active Substance: OXYCODONE HYDROCHLORIDE
     Indication: NECK PAIN
     Dosage: UNK UNK, PRN
     Route: 048
  9. OXYCODONE HCL CR TABLETS (SIMILAR TO NDA 22?272) [Suspect]
     Active Substance: OXYCODONE HYDROCHLORIDE
     Indication: NECK PAIN
     Dosage: UNK, PRN
  10. TRAMADOL. [Suspect]
     Active Substance: TRAMADOL
     Indication: PRODUCT USED FOR UNKNOWN INDICATION
  11. TRAZODONE [Concomitant]
     Active Substance: TRAZODONE HYDROCHLORIDE
     Indication: INSOMNIA
     Dosage: 50 MG, UNK
     Route: 048
  12. MOBIC [Concomitant]
     Active Substance: MELOXICAM
     Indication: CERVICAL RADICULOPATHY
     Dosage: UNK
     Route: 048
     Dates: start: 20160407
  13. SEROQUEL [Suspect]
     Active Substance: QUETIAPINE FUMARATE
     Indication: PRODUCT USED FOR UNKNOWN INDICATION
     Dosage: UNK
     Route: 048
  14. RISPERDAL [Suspect]
     Active Substance: RISPERIDONE
     Indication: PRODUCT USED FOR UNKNOWN INDICATION
     Dosage: UNK
     Route: 048
  15. DEPAKOTE ER [Concomitant]
     Active Substance: DIVALPROEX SODIUM
     Indication: BIPOLAR DISORDER
     Dosage: 1500 MG, DAILY
     Route: 048

REACTIONS (15)
  - Increased appetite [Unknown]
  - Anxiety [Unknown]
  - Body tinea [Unknown]
  - Erectile dysfunction [Unknown]
  - Drug dependence [Recovering/Resolving]
  - Pain [Not Recovered/Not Resolved]
  - Insomnia [Unknown]
  - Thirst [Unknown]
  - Patellofemoral pain syndrome [Unknown]
  - Depression [Unknown]
  - Genital lesion [Unknown]
  - Panic attack [Unknown]
  - Bipolar disorder [Not Recovered/Not Resolved]
  - Arthralgia [Not Recovered/Not Resolved]
  - Dermatitis [Unknown]

NARRATIVE: CASE EVENT DATE: 201404
